FAERS Safety Report 6985019-9 (Version None)
Quarter: 2010Q3

REPORT INFORMATION
  Report Type: 
  Country: None (occurrence: None)
  Receive Date: 20100915
  Receipt Date: 20100903
  Transmission Date: 20110219
  Serious: Yes (Other)
  Sender: FDA-Public Use
  Company Number: PHHY2010DE58932

PATIENT
  Age: 68 Year
  Sex: Female

DRUGS (1)
  1. FEMARA [Suspect]
     Indication: BREAST CANCER
     Dosage: 2.5 MG, DAILY
     Route: 048
     Dates: start: 20060101, end: 20100801

REACTIONS (5)
  - INFLAMMATION OF WOUND [None]
  - INFLUENZA LIKE ILLNESS [None]
  - METASTASES TO SKIN [None]
  - PURULENT DISCHARGE [None]
  - SCAB [None]
